FAERS Safety Report 4802535-6 (Version None)
Quarter: 2005Q4

REPORT INFORMATION
  Report Type: 
  Country: None (occurrence: None)
  Receive Date: 20051013
  Receipt Date: 20051010
  Transmission Date: 20060501
  Serious: Yes (Death, Hospitalization, Other)
  Sender: FDA-Public Use
  Company Number: MED05065

PATIENT
  Age: 76 Year
  Sex: Female

DRUGS (1)
  1. TRAMADOL HCL [Suspect]
     Dosage: 1 BID PRN PAIN

REACTIONS (3)
  - DELIRIUM [None]
  - DIALYSIS [None]
  - INFECTION [None]
